FAERS Safety Report 5867698-2 (Version None)
Quarter: 2008Q3

REPORT INFORMATION
  Report Type: 
  Country: None (occurrence: None)
  Receive Date: 20080902
  Receipt Date: 20080124
  Transmission Date: 20090109
  Serious: No
  Sender: FDA-Public Use
  Company Number: US-ABBOTT-08P-163-0435087-00

PATIENT
  Sex: Male
  Weight: 32.143 kg

DRUGS (2)
  1. DEPAKOTE ER [Suspect]
     Indication: AFFECTIVE DISORDER
     Route: 048
     Dates: start: 20080115, end: 20080125
  2. RISPERIDONE [Concomitant]
     Indication: DRUG USE FOR UNKNOWN INDICATION
     Dates: start: 20080104, end: 20080126

REACTIONS (2)
  - DYSURIA [None]
  - SPONTANEOUS PENILE ERECTION [None]
